FAERS Safety Report 5236138-9 (Version None)
Quarter: 2007Q1

REPORT INFORMATION
  Report Type: 
  Country: None (occurrence: None)
  Receive Date: 20061208
  Receipt Date: 20051027
  Transmission Date: 20070707
  Serious: Yes (Other)
  Sender: FDA-Public Use
  Company Number: 2005UW16246

PATIENT
  Age: 45 Year
  Sex: Female
  Weight: 77.11 kg

DRUGS (4)
  1. CRESTOR [Suspect]
     Indication: BLOOD CHOLESTEROL INCREASED
     Dosage: 10 MG PO
     Route: 048
     Dates: start: 20050501
  2. SYNTHROID [Concomitant]
  3. AMITRIPTYLINE HCL [Concomitant]
  4. ATENOLOL [Concomitant]

REACTIONS (1)
  - ALOPECIA [None]
